FAERS Safety Report 25084703 (Version 1)
Quarter: 2025Q1

REPORT INFORMATION
  Report Type: Spontaneous
  Country: JP (occurrence: JP)
  Receive Date: 20250317
  Receipt Date: 20250317
  Transmission Date: 20250408
  Serious: Yes (Other)
  Sender: PFIZER
  Company Number: JP-PFIZER INC-202500056297

PATIENT

DRUGS (5)
  1. METHOTREXATE SODIUM [Suspect]
     Active Substance: METHOTREXATE SODIUM
     Indication: Central nervous system lymphoma
     Dates: start: 20250306
  2. RITUXIMAB [Suspect]
     Active Substance: RITUXIMAB
     Indication: Central nervous system lymphoma
     Dates: start: 202503
  3. PROCARBAZINE [Suspect]
     Active Substance: PROCARBAZINE
     Indication: Central nervous system lymphoma
     Dates: start: 202503
  4. VINCRISTINE [Suspect]
     Active Substance: VINCRISTINE
     Indication: Central nervous system lymphoma
     Dates: start: 202503
  5. LEUCOVORIN [Concomitant]
     Active Substance: LEUCOVORIN\LEUCOVORIN CALCIUM
     Indication: Chemotherapy side effect prophylaxis
     Dosage: 24 MG, 4X/DAY
     Dates: start: 202503

REACTIONS (3)
  - Nephropathy toxic [Recovering/Resolving]
  - Renal impairment [Recovering/Resolving]
  - Chemotherapeutic drug level increased [Recovering/Resolving]

NARRATIVE: CASE EVENT DATE: 20250301
